FAERS Safety Report 9352092 (Version 1)
Quarter: 2013Q2

REPORT INFORMATION
  Report Type: Spontaneous
  Country: US (occurrence: None)
  Receive Date: 20130612
  Receipt Date: 20130612
  Transmission Date: 20140414
  Serious: Yes (Other)
  Sender: FDA-Public Use
  Company Number: 2013060012

PATIENT
  Age: 31 Year
  Sex: Female
  Weight: 50 kg

DRUGS (1)
  1. ALLERGODIL [Suspect]
     Indication: CONJUNCTIVITIS ALLERGIC
     Dosage: 1 GTT (1 GTT, 1 IN 1 TOTAL), OPHTHALMIC
     Route: 047
     Dates: start: 20120507, end: 20120507

REACTIONS (6)
  - Eye swelling [None]
  - Eyelid oedema [None]
  - Eye inflammation [None]
  - Eye allergy [None]
  - Application site pain [None]
  - Application site pruritus [None]
